FAERS Safety Report 21840302 (Version 2)
Quarter: 2023Q1

REPORT INFORMATION
  Report Type: Report from Study
  Country: US (occurrence: US)
  Receive Date: 20230110
  Receipt Date: 20230112
  Transmission Date: 20230418
  Serious: No
  Sender: FDA-Public Use
  Company Number: US-ABBVIE-4261897

PATIENT
  Age: 81 Year
  Sex: Female
  Weight: 63.5 kg

DRUGS (15)
  1. DUOPA [Suspect]
     Active Substance: CARBIDOPA\LEVODOPA
     Indication: Parkinson^s disease
     Route: 050
     Dates: start: 20200825
  2. DUOPA [Suspect]
     Active Substance: CARBIDOPA\LEVODOPA
     Indication: Product used for unknown indication
  3. ESCITALOPRAM [Concomitant]
     Active Substance: ESCITALOPRAM OXALATE
     Indication: Anxiety disorder
     Dosage: FORM STRENGTH- 20 MG
     Route: 048
  4. MELATONIN [Concomitant]
     Active Substance: MELATONIN
     Indication: Sleep disorder therapy
     Dosage: FORM STRENGTH- 5 MG
     Route: 048
  5. QUETIAPINE FUMARATE [Concomitant]
     Active Substance: QUETIAPINE FUMARATE
     Indication: Skin disorder prophylaxis
     Dosage: FORM STRENGTH- 25 MG
     Route: 048
  6. MEMANTINE [Concomitant]
     Active Substance: MEMANTINE
     Indication: Memory impairment
     Dosage: FORM STRENGTH- 10 MG
     Route: 048
  7. CARBIDOPA\LEVODOPA [Concomitant]
     Active Substance: CARBIDOPA\LEVODOPA
     Indication: Product used for unknown indication
     Dosage: FORM STRENGTH - 1 TABLET
     Route: 048
  8. ROPINIROLE [Concomitant]
     Active Substance: ROPINIROLE
     Indication: Restless legs syndrome
     Dosage: FORM STRENGTH- 2 MG
     Route: 048
  9. TIZANIDINE [Concomitant]
     Active Substance: TIZANIDINE
     Indication: Restless legs syndrome
     Dosage: FORM STRENGTH- 4 MG
     Route: 048
  10. VITAMIN B [Concomitant]
     Active Substance: VITAMIN B
     Indication: Supplementation therapy
     Dosage: FORM STRENGTH- 100 MG
     Route: 048
  11. DONEPEZIL [Concomitant]
     Active Substance: DONEPEZIL
     Indication: Memory impairment
     Dosage: FORM STRENGTH- 10 MG
     Route: 048
  12. MIDODRINE [Concomitant]
     Active Substance: MIDODRINE
     Indication: Hypotension
     Dosage: FORM STRENGTH- 5 MG
     Route: 048
  13. IBUPROFEN [Concomitant]
     Active Substance: IBUPROFEN
     Indication: Pain
     Dosage: 100M
  14. ASPIRIN [Concomitant]
     Active Substance: ASPIRIN
     Indication: Pain
     Dosage: FORM STRENGTH- 81 MG
     Route: 048
  15. BUSPIRONE [Concomitant]
     Active Substance: BUSPIRONE HYDROCHLORIDE
     Indication: Anxiety disorder
     Dosage: FORM STRENGTH - 5 MG
     Route: 048

REACTIONS (5)
  - Fungal infection [Recovering/Resolving]
  - Stoma site erythema [Recovered/Resolved]
  - Stoma site irritation [Recovered/Resolved]
  - Stoma site reaction [Recovered/Resolved]
  - Stoma site discharge [Recovered/Resolved]

NARRATIVE: CASE EVENT DATE: 20221201
